FAERS Safety Report 10482525 (Version 1)
Quarter: 2014Q3

REPORT INFORMATION
  Report Type: Spontaneous
  Country: US (occurrence: US)
  Receive Date: 20140929
  Receipt Date: 20140929
  Transmission Date: 20150326
  Serious: Yes (Other)
  Sender: FDA-Public Use
  Company Number: US-ACTAVIS-2014-21049

PATIENT
  Sex: Male

DRUGS (1)
  1. MORPHINE SULFATE (AELLC) [Suspect]
     Active Substance: MORPHINE SULFATE
     Indication: PAIN
     Dosage: 2.5 MG, DAILY
     Route: 037
     Dates: start: 1995, end: 200702

REACTIONS (4)
  - Oedema peripheral [Recovering/Resolving]
  - Secondary hypothyroidism [Recovered/Resolved]
  - Gynaecomastia [Recovering/Resolving]
  - Secondary adrenocortical insufficiency [Recovering/Resolving]
